FAERS Safety Report 5385579-8 (Version None)
Quarter: 2007Q3

REPORT INFORMATION
  Report Type: 
  Country: None (occurrence: None)
  Receive Date: 20070712
  Receipt Date: 20070709
  Transmission Date: 20080115
  Serious: Yes (Hospitalization)
  Sender: FDA-Public Use
  Company Number: DE-MERCK-0707DEU00046

PATIENT
  Sex: Male

DRUGS (1)
  1. FOSAMAX [Suspect]
     Route: 048

REACTIONS (1)
  - GASTRIC PERFORATION [None]
